FAERS Safety Report 5875888-8 (Version None)
Quarter: 2008Q3

REPORT INFORMATION
  Report Type: 
  Country: None (occurrence: None)
  Receive Date: 20080905
  Receipt Date: 20080828
  Transmission Date: 20090109
  Serious: Yes (Hospitalization)
  Sender: FDA-Public Use
  Company Number: 2008SP017789

PATIENT
  Age: 34 Year
  Sex: Female
  Weight: 65.5 kg

DRUGS (10)
  1. NOXAFIL [Suspect]
     Indication: HEPATOSPLENIC CANDIDIASIS
     Dosage: 400 MG; BID; PO
     Route: 048
     Dates: start: 20071019, end: 20080125
  2. PANTOPRAZOLE SODIUM [Concomitant]
  3. VOGALENE [Concomitant]
  4. ONDANSETRON [Concomitant]
  5. KALEORID [Concomitant]
  6. DEXAMETHASONE [Concomitant]
  7. ACICLODAN [Concomitant]
  8. ALLOPURINOL [Concomitant]
  9. CYTARABINE [Concomitant]
  10. ETOPOSID [Concomitant]

REACTIONS (1)
  - SINOATRIAL BLOCK [None]
